FAERS Safety Report 20308890 (Version 2)
Quarter: 2022Q1

REPORT INFORMATION
  Report Type: Spontaneous
  Country: CN (occurrence: CN)
  Receive Date: 20220107
  Receipt Date: 20220110
  Transmission Date: 20220423
  Serious: Yes (Other)
  Sender: FDA-Public Use
  Company Number: CN-JNJFOC-20220107837

PATIENT
  Age: 23 Day
  Sex: Male
  Weight: 2.07 kg

DRUGS (4)
  1. MOTRIN INFANTS [Suspect]
     Active Substance: IBUPROFEN
     Indication: Patent ductus arteriosus
     Dosage: 0.25 ML QD VIA NASAL FEEDING
     Route: 045
     Dates: start: 20211210, end: 20211210
  2. MOTRIN INFANTS [Suspect]
     Active Substance: IBUPROFEN
     Route: 045
     Dates: start: 20211209, end: 20211209
  3. MOTRIN INFANTS [Suspect]
     Active Substance: IBUPROFEN
     Route: 045
     Dates: start: 20211204, end: 20211205
  4. MOTRIN INFANTS [Suspect]
     Active Substance: IBUPROFEN
     Route: 045
     Dates: start: 20211203, end: 20211203

REACTIONS (1)
  - Urinary retention [Recovering/Resolving]

NARRATIVE: CASE EVENT DATE: 20211210
